FAERS Safety Report 23026713 (Version 1)
Quarter: 2023Q4

REPORT INFORMATION
  Report Type: Report from Study
  Country: CA (occurrence: CA)
  Receive Date: 20231004
  Receipt Date: 20231004
  Transmission Date: 20240109
  Serious: Yes (Hospitalization)
  Sender: FDA-Public Use
  Company Number: CA-JNJFOC-20230507429

PATIENT
  Age: 57 Year
  Sex: Female

DRUGS (2)
  1. SIMPONI [Suspect]
     Active Substance: GOLIMUMAB
     Indication: Crohn^s disease
     Route: 058
     Dates: start: 20180209
  2. SIMPONI [Suspect]
     Active Substance: GOLIMUMAB
     Indication: Ankylosing spondylitis
     Route: 058
     Dates: start: 20181102

REACTIONS (7)
  - Colitis ischaemic [Unknown]
  - Large intestine perforation [Unknown]
  - Renal disorder [Unknown]
  - Asthenia [Unknown]
  - Wound abscess [Unknown]
  - Off label use [Unknown]
  - Inappropriate schedule of product administration [Unknown]

NARRATIVE: CASE EVENT DATE: 20230901
